FAERS Safety Report 7045566-0 (Version None)
Quarter: 2010Q4

REPORT INFORMATION
  Report Type: 
  Country: None (occurrence: None)
  Receive Date: 20101013
  Receipt Date: 20101013
  Transmission Date: 20110411
  Serious: Yes (Hospitalization)
  Sender: FDA-Public Use
  Company Number: None

PATIENT
  Age: 40 Month
  Sex: Male
  Weight: 158.759 kg

DRUGS (2)
  1. OXYCONTIN [Suspect]
     Indication: COMPLEX REGIONAL PAIN SYNDROME
     Dosage: 120 MG BID PO
     Route: 048
     Dates: start: 20100908, end: 20101010
  2. OXYCONTIN [Suspect]
     Indication: BONE DISORDER

REACTIONS (5)
  - ABDOMINAL PAIN UPPER [None]
  - HEADACHE [None]
  - INADEQUATE ANALGESIA [None]
  - PRODUCT FORMULATION ISSUE [None]
  - SKIN DISORDER [None]
